FAERS Safety Report 7204050-1 (Version None)
Quarter: 2010Q4

REPORT INFORMATION
  Report Type: 
  Country: None (occurrence: None)
  Receive Date: 20101230
  Receipt Date: 20101221
  Transmission Date: 20110411
  Serious: Yes (Other)
  Sender: FDA-Public Use
  Company Number: FR-JNJFOC-20101207674

PATIENT
  Age: 20 Year
  Sex: Female
  Weight: 52 kg

DRUGS (9)
  1. REMICADE [Suspect]
     Indication: CROHN'S DISEASE
     Dosage: 5 INFUSIONS; DATES UNSPECIFIED
     Route: 042
  2. REMICADE [Suspect]
     Dosage: 6TH INFUSION
     Route: 042
  3. REMICADE [Suspect]
     Route: 042
  4. REMICADE [Suspect]
     Route: 042
  5. ADEPAL [Suspect]
     Indication: CONTRACEPTION
  6. HYDROCORTISONE [Concomitant]
     Indication: PREMEDICATION
     Dosage: 30 MINUTES PRIOR TO INFLIXIMAB, RECOMBINANT INFUSION
     Route: 042
  7. HYDROCORTISONE [Concomitant]
     Dosage: 30 MINUTES PRIOR TO INFLIXIMAB, RECOMBINANT INFUSION
     Route: 042
  8. AERIUS [Concomitant]
     Indication: PREMEDICATION
     Dosage: 30 MINUTES PRIOR TO INFLIXIMAB, RECOMBINANT INFUSION
     Route: 048
  9. AERIUS [Concomitant]
     Dosage: 30 MINUTES PRIOR TO INFLIXIMAB, RECOMBINANT INFUSION
     Route: 048

REACTIONS (10)
  - ABDOMINAL PAIN LOWER [None]
  - ABORTION SPONTANEOUS [None]
  - CHEST PAIN [None]
  - DIARRHOEA [None]
  - DRUG EXPOSURE DURING PREGNANCY [None]
  - INFUSION RELATED REACTION [None]
  - MALAISE [None]
  - SENSE OF OPPRESSION [None]
  - URTICARIA [None]
  - WEIGHT DECREASED [None]
